FAERS Safety Report 21925859 (Version 1)
Quarter: 2023Q1

REPORT INFORMATION
  Report Type: Report from Study
  Country: GB (occurrence: GB)
  Receive Date: 20230130
  Receipt Date: 20230130
  Transmission Date: 20230418
  Serious: Yes (Other)
  Sender: FDA-Public Use
  Company Number: GB-JNJFOC-20230132791

PATIENT
  Age: 8 Decade
  Sex: Female

DRUGS (4)
  1. STELARA [Suspect]
     Active Substance: USTEKINUMAB
     Indication: Psoriasis
     Route: 058
  2. STELARA [Suspect]
     Active Substance: USTEKINUMAB
  3. PRED FORTE [Concomitant]
     Active Substance: PREDNISOLONE ACETATE
     Dosage: FOR 4 WEEKS- 1 QDS
  4. CHLORAMPHENICOL [Concomitant]
     Active Substance: CHLORAMPHENICOL
     Dosage: FOR 2 WEEKS - 1 QDS

REACTIONS (1)
  - Cataract [Unknown]
